FAERS Safety Report 7421780-7 (Version None)
Quarter: 2011Q2

REPORT INFORMATION
  Report Type: 
  Country: None (occurrence: None)
  Receive Date: 20110407
  Receipt Date: 20110330
  Transmission Date: 20111010
  Serious: Yes (Hospitalization)
  Sender: FDA-Public Use
  Company Number: UTC-006025

PATIENT
  Age: 76 Year
  Sex: Male

DRUGS (3)
  1. TRACLEER [Concomitant]
  2. REVATIO (SILAENAFIL CITRATE) [Concomitant]
  3. REMODULIN [Suspect]
     Indication: PH BODY FLUID
     Dosage: 24.48 UG/KG (0.017 UG/KG, 1 IN 1 MIN),SUBCUTANEOUS
     Route: 058
     Dates: start: 20110317

REACTIONS (4)
  - DYSPNOEA [None]
  - OEDEMA PERIPHERAL [None]
  - FLUID OVERLOAD [None]
  - SWELLING FACE [None]
